FAERS Safety Report 19827486 (Version 3)
Quarter: 2023Q4

REPORT INFORMATION
  Report Type: Spontaneous
  Country: US (occurrence: US)
  Receive Date: 20210914
  Receipt Date: 20231026
  Transmission Date: 20240109
  Serious: Yes (Other)
  Sender: FDA-Public Use
  Company Number: US-COOPERSURGICAL, INC.-US-2021CPS002707

PATIENT
  Age: 38 Year
  Sex: Female
  Weight: 58.957 kg

DRUGS (5)
  1. PARAGARD T 380A [Suspect]
     Active Substance: COPPER
     Indication: Contraception
     Dosage: UNK
     Route: 015
     Dates: start: 20180319
  2. HEMORRHOID OINTMENT [Concomitant]
     Indication: Haemorrhoids
     Dosage: UNK
     Route: 054
  3. MINERALS\VITAMINS [Concomitant]
     Active Substance: MINERALS\VITAMINS
     Indication: Product used for unknown indication
     Dosage: UNK UNK, QD
     Route: 048
  4. FERROUS SULFATE [Concomitant]
     Active Substance: FERROUS SULFATE
     Indication: Product used for unknown indication
     Dosage: 325 MG, QD
     Route: 048
  5. NOR-QD [Concomitant]
     Active Substance: NORETHINDRONE
     Indication: Contraception
     Dosage: UNK
     Route: 048
     Dates: start: 20171220, end: 20180319

REACTIONS (17)
  - Uterine leiomyoma [Unknown]
  - Breast mass [Unknown]
  - Abnormal uterine bleeding [Recovered/Resolved]
  - Haemorrhoids [Unknown]
  - Anxiety [Not Recovered/Not Resolved]
  - Impaired work ability [Not Recovered/Not Resolved]
  - Economic problem [Not Recovered/Not Resolved]
  - Emotional distress [Unknown]
  - Depression [Unknown]
  - Menstruation irregular [Unknown]
  - Complication associated with device [Unknown]
  - Anaemia [Unknown]
  - Heavy menstrual bleeding [Unknown]
  - Hypomenorrhoea [Unknown]
  - Breast pain [Unknown]
  - Intermenstrual bleeding [Unknown]
  - Device dislocation [Unknown]

NARRATIVE: CASE EVENT DATE: 20180430
